FAERS Safety Report 7951555-1 (Version None)
Quarter: 2011Q4

REPORT INFORMATION
  Report Type: 
  Country: None (occurrence: None)
  Receive Date: 20111201
  Receipt Date: 20111118
  Transmission Date: 20120403
  Serious: Yes (Hospitalization, Other)
  Sender: FDA-Public Use
  Company Number: FR-JNJFOC-20111108891

PATIENT
  Sex: Male
  Weight: 43 kg

DRUGS (4)
  1. AZATHIOPRINE [Suspect]
     Indication: PRODUCT USED FOR UNKNOWN INDICATION
  2. REMICADE [Suspect]
     Route: 042
     Dates: start: 20110919
  3. REMICADE [Suspect]
     Route: 042
     Dates: start: 20110729, end: 20110801
  4. REMICADE [Suspect]
     Indication: CROHN'S DISEASE
     Route: 042
     Dates: start: 20100301

REACTIONS (1)
  - LYMPHADENOPATHY [None]
